FAERS Safety Report 18638976 (Version 5)
Quarter: 2024Q3

REPORT INFORMATION
  Report Type: Spontaneous
  Country: US (occurrence: US)
  Receive Date: 20201218
  Receipt Date: 20240917
  Transmission Date: 20241016
  Serious: No
  Sender: PFIZER
  Company Number: US-PFIZER INC-2020500490

PATIENT
  Age: 65 Year
  Sex: Female

DRUGS (3)
  1. XELJANZ XR [Suspect]
     Active Substance: TOFACITINIB CITRATE
     Dosage: 11 MG, DAILY ((BEFORE A MEAL) FOR 90 DAYS)
  2. ALLOPURINOL [Concomitant]
     Active Substance: ALLOPURINOL
  3. OZEMPIC [Concomitant]
     Active Substance: SEMAGLUTIDE

REACTIONS (4)
  - Urinary tract infection [Unknown]
  - Thyroid disorder [Unknown]
  - Skin disorder [Unknown]
  - Illness [Unknown]

NARRATIVE: CASE EVENT DATE: 20240101
